FAERS Safety Report 6430008-6 (Version None)
Quarter: 2009Q4

REPORT INFORMATION
  Report Type: 
  Country: None (occurrence: None)
  Receive Date: 20091104
  Receipt Date: 20091104
  Transmission Date: 20100525
  Serious: Yes (Other)
  Sender: FDA-Public Use
  Company Number: None

PATIENT
  Age: 73 Year
  Sex: Female
  Weight: 49.8957 kg

DRUGS (2)
  1. FLAGYL [Suspect]
     Indication: CLOSTRIDIAL INFECTION
     Dosage: 1000 MG 3 X DAILY IV DRIP
     Route: 041
     Dates: start: 20090928, end: 20091008
  2. FLAGYL [Suspect]
     Indication: COLITIS
     Dosage: 500 MG TABLET 3 X DAILY PO
     Route: 048
     Dates: start: 20091009, end: 20091028

REACTIONS (5)
  - BURNING SENSATION [None]
  - FEELING ABNORMAL [None]
  - FLUID RETENTION [None]
  - HYPOAESTHESIA [None]
  - PARAESTHESIA [None]
